FAERS Safety Report 9412376 (Version 1)
Quarter: 2013Q3

REPORT INFORMATION
  Report Type: Report from Study
  Country: IL (occurrence: IL)
  Receive Date: 20130722
  Receipt Date: 20130722
  Transmission Date: 20140515
  Serious: Yes (Hospitalization)
  Sender: FDA-Public Use
  Company Number: IL-ROCHE-1251493

PATIENT
  Age: 44 Year
  Sex: Male
  Weight: 66 kg

DRUGS (4)
  1. PEG-INTERFERON ALFA 2A [Suspect]
     Indication: HEPATITIS C
     Route: 058
     Dates: start: 20130504
  2. RIBAVIRIN [Suspect]
     Indication: HEPATITIS C
     Route: 048
  3. TELAPREVIR [Suspect]
     Indication: HEPATITIS C
     Route: 048
  4. RECORMON [Concomitant]
     Indication: ANAEMIA
     Route: 058
     Dates: start: 20130721

REACTIONS (2)
  - Pancytopenia [Recovered/Resolved]
  - Anaemia [Recovered/Resolved]
